FAERS Safety Report 8507937-2 (Version None)
Quarter: 2012Q3

REPORT INFORMATION
  Report Type: 
  Country: None (occurrence: None)
  Receive Date: 20120709
  Receipt Date: 20120709
  Transmission Date: 20120928
  Serious: Yes (Hospitalization)
  Sender: FDA-Public Use
  Company Number: None

PATIENT
  Age: 46 Year
  Sex: Female
  Weight: 97.5234 kg

DRUGS (1)
  1. VENLAFAXINE HCL [Suspect]
     Indication: DEPRESSION
     Dosage: 1 PER DAY PO
     Route: 048
     Dates: start: 20111101, end: 20120521

REACTIONS (6)
  - DIZZINESS [None]
  - HYPOAESTHESIA ORAL [None]
  - HYPOAESTHESIA [None]
  - PAROSMIA [None]
  - VISUAL IMPAIRMENT [None]
  - DECREASED APPETITE [None]
